FAERS Safety Report 19701720 (Version 2)
Quarter: 2021Q4

REPORT INFORMATION
  Report Type: Spontaneous
  Country: JP (occurrence: JP)
  Receive Date: 20210813
  Receipt Date: 20211028
  Transmission Date: 20220303
  Serious: Yes (Hospitalization, Other)
  Sender: FDA-Public Use
  Company Number: NVSC2021JP165380

PATIENT
  Age: 83 Year
  Sex: Female
  Weight: 59 kg

DRUGS (4)
  1. RECLAST [Suspect]
     Active Substance: ZOLEDRONIC ACID
     Indication: Osteoporosis
     Dosage: 5 MG, Q12MO (ONCE YEARLY)
     Route: 041
     Dates: start: 20210614, end: 20210614
  2. AMLODIPINE [Concomitant]
     Active Substance: AMLODIPINE BESYLATE
     Indication: Product used for unknown indication
     Dosage: 5 MG
     Route: 048
     Dates: start: 20201002
  3. LINAGLIPTIN [Concomitant]
     Active Substance: LINAGLIPTIN
     Indication: Product used for unknown indication
     Dosage: 5 MG
     Route: 048
     Dates: start: 20200903
  4. ELDECALCITOL [Concomitant]
     Active Substance: ELDECALCITOL
     Indication: Product used for unknown indication
     Dosage: UNK
     Route: 048
     Dates: start: 20210514

REACTIONS (11)
  - Malignant neoplasm progression [Unknown]
  - Weight decreased [Not Recovered/Not Resolved]
  - Decreased appetite [Not Recovered/Not Resolved]
  - Chest pain [Not Recovered/Not Resolved]
  - Pancreatic carcinoma metastatic [Unknown]
  - Abdominal pain upper [Not Recovered/Not Resolved]
  - Metastases to peritoneum [Unknown]
  - Metastases to liver [Unknown]
  - Metastases to spine [Unknown]
  - Obstructive pancreatitis [Unknown]
  - Pyrexia [Recovered/Resolved]

NARRATIVE: CASE EVENT DATE: 20210614
